FAERS Safety Report 16903351 (Version 2)
Quarter: 2019Q4

REPORT INFORMATION
  Report Type: Spontaneous
  Country: JP (occurrence: JP)
  Receive Date: 20191010
  Receipt Date: 20191114
  Transmission Date: 20200122
  Serious: Yes (Other)
  Sender: FDA-Public Use
  Company Number: JP-MYLANLABS-2019M1094902

PATIENT
  Sex: Female
  Weight: 65 kg

DRUGS (2)
  1. ANASTROZOLE. [Suspect]
     Active Substance: ANASTROZOLE
     Indication: BREAST CANCER STAGE II
     Dosage: 1 MILLIGRAM, QD
     Route: 048
     Dates: start: 20120418, end: 20190611
  2. OLMETEC [Concomitant]
     Active Substance: OLMESARTAN MEDOXOMIL
     Indication: HYPERTENSION
     Dosage: 20 MILLIGRAM, QD
     Route: 048
     Dates: start: 20140430, end: 20190611

REACTIONS (2)
  - Drug ineffective [Unknown]
  - Metastases to lung [Not Recovered/Not Resolved]
